FAERS Safety Report 9128900 (Version 1)
Quarter: 2013Q1

REPORT INFORMATION
  Report Type: Spontaneous
  Country: US (occurrence: US)
  Receive Date: 20130228
  Receipt Date: 20130228
  Transmission Date: 20140127
  Serious: Yes (Other)
  Sender: FDA-Public Use
  Company Number: US-GLAXOSMITHKLINE-A0992273A

PATIENT
  Age: 56 Year
  Sex: Female
  Weight: 60.84 kg

DRUGS (3)
  1. BENLYSTA [Suspect]
     Indication: SYSTEMIC LUPUS ERYTHEMATOSUS
     Route: 042
     Dates: start: 20111206
  2. PREDNISONE [Concomitant]
     Dosage: 1MG PER DAY
  3. ALEVE [Concomitant]

REACTIONS (4)
  - Loss of consciousness [Recovered/Resolved]
  - Dizziness [Recovered/Resolved]
  - Feeling abnormal [Recovered/Resolved]
  - Weight increased [Recovered/Resolved]
